FAERS Safety Report 9537116 (Version 2)
Quarter: 2013Q4

REPORT INFORMATION
  Report Type: Spontaneous
  Country: AU (occurrence: AU)
  Receive Date: 20130919
  Receipt Date: 20131014
  Transmission Date: 20140711
  Serious: Yes (Other)
  Sender: FDA-Public Use
  Company Number: AU-ABBVIE-13P-008-1148937-00

PATIENT
  Age: 73 Year
  Sex: Male

DRUGS (14)
  1. LIPIDIL [Suspect]
     Indication: DYSLIPIDAEMIA
     Dates: start: 20130508
  2. LIPIDIL [Suspect]
     Indication: TYPE 2 DIABETES MELLITUS
     Dates: start: 20130703, end: 20130828
  3. LIPIDIL [Suspect]
     Indication: HYPERTRIGLYCERIDAEMIA
  4. ZOCOR [Concomitant]
     Indication: PRODUCT USED FOR UNKNOWN INDICATION
  5. STATIN [Concomitant]
     Indication: PRODUCT USED FOR UNKNOWN INDICATION
  6. ASTRIX [Concomitant]
     Indication: PRODUCT USED FOR UNKNOWN INDICATION
  7. ATACAND PLUS [Concomitant]
     Indication: PRODUCT USED FOR UNKNOWN INDICATION
  8. DIABEX [Concomitant]
     Indication: PRODUCT USED FOR UNKNOWN INDICATION
  9. ENDEP [Concomitant]
     Indication: PRODUCT USED FOR UNKNOWN INDICATION
  10. GLICLAZIDE [Concomitant]
     Indication: PRODUCT USED FOR UNKNOWN INDICATION
  11. NORVASC [Concomitant]
     Indication: PRODUCT USED FOR UNKNOWN INDICATION
  12. PANADOL OSTEO [Concomitant]
     Indication: PRODUCT USED FOR UNKNOWN INDICATION
  13. SOMAC [Concomitant]
     Indication: PRODUCT USED FOR UNKNOWN INDICATION
  14. XALATAN [Concomitant]
     Indication: PRODUCT USED FOR UNKNOWN INDICATION

REACTIONS (1)
  - Blood glucose increased [Recovering/Resolving]
